FAERS Safety Report 8900804 (Version 2)
Quarter: 2012Q4

REPORT INFORMATION
  Report Type: 
  Country: US (occurrence: US)
  Receive Date: 20121109
  Receipt Date: 20121205
  Transmission Date: 20130627
  Serious: Yes (Hospitalization)
  Sender: FDA-Public Use
  Company Number: US-B.I. PHARMACEUTICALS,INC./RIDGEFIELD-2012-BP-27227BP

PATIENT
  Age: 69 Year
  Sex: Male
  Weight: 95 kg

DRUGS (11)
  1. PRADAXA [Suspect]
     Indication: CEREBROVASCULAR ACCIDENT PROPHYLAXIS
     Dosage: 300 mg
     Route: 048
     Dates: start: 20120327, end: 20121026
  2. PRADAXA [Suspect]
     Indication: ATRIAL FIBRILLATION
     Dates: start: 20121116
  3. OMEPRAZOLE [Concomitant]
     Indication: GASTROOESOPHAGEAL REFLUX DISEASE
     Dosage: 80 mg
     Route: 048
     Dates: start: 20121025
  4. DIGOXIN [Concomitant]
     Indication: ATRIAL FIBRILLATION
     Dosage: 0.125 mcg
     Route: 048
     Dates: start: 2009
  5. METOPROLOL [Concomitant]
     Indication: HYPERTENSION
     Route: 048
     Dates: start: 2009
  6. METFORMIN [Concomitant]
     Indication: DIABETES MELLITUS
     Dosage: 2000 mg
     Route: 048
     Dates: start: 2006
  7. KLOR CON M [Concomitant]
     Indication: BLOOD POTASSIUM DECREASED
     Dosage: 20 mEq
     Route: 048
     Dates: start: 2009
  8. MAG OXIDE [Concomitant]
     Indication: BLOOD MAGNESIUM DECREASED
     Dosage: 800 mg
     Route: 048
     Dates: start: 2009
  9. SPIRINOLACTONE [Concomitant]
     Indication: PULMONARY OEDEMA
     Dosage: 50 mg
     Route: 048
     Dates: start: 2009
  10. NAPROXEN [Concomitant]
     Indication: ARTHRITIS
     Dosage: 1000 mg
     Route: 048
     Dates: start: 2006
  11. LASIX [Concomitant]
     Indication: ATRIAL FIBRILLATION
     Dates: start: 2009

REACTIONS (8)
  - Rectal haemorrhage [Recovered/Resolved]
  - Syncope [Unknown]
  - Anaemia [Unknown]
  - Dizziness [Unknown]
  - Injury [Not Recovered/Not Resolved]
  - Contusion [Not Recovered/Not Resolved]
  - Coagulopathy [Recovered/Resolved]
  - Head injury [Recovered/Resolved]
